FAERS Safety Report 10173545 (Version 1)
Quarter: 2014Q2

REPORT INFORMATION
  Report Type: Spontaneous
  Country: US (occurrence: US)
  Receive Date: 20140515
  Receipt Date: 20140515
  Transmission Date: 20141212
  Serious: No
  Sender: FDA-Public Use
  Company Number: US-PFIZER INC-2014132610

PATIENT
  Sex: Male

DRUGS (1)
  1. GEODON [Suspect]
     Dosage: UNK

REACTIONS (6)
  - Dyspnoea [Unknown]
  - Fluid imbalance [Unknown]
  - Asthenia [Unknown]
  - Feeling abnormal [Unknown]
  - Infection [Unknown]
  - Pharyngitis [Unknown]
